FAERS Safety Report 4754170-6 (Version None)
Quarter: 2005Q3

REPORT INFORMATION
  Report Type: 
  Country: None (occurrence: None)
  Receive Date: 20050826
  Receipt Date: 19960425
  Transmission Date: 20060218
  Serious: Yes (Death, Hospitalization)
  Sender: FDA-Public Use
  Company Number: JP-ABBOTT-05P-087-0307907-00

PATIENT
  Age: 76 Year
  Sex: Female

DRUGS (12)
  1. ERYTHROCIN [Suspect]
     Indication: PROPHYLAXIS
     Route: 048
     Dates: start: 19960217, end: 19960218
  2. KANAMYCIN [Suspect]
     Indication: PROPHYLAXIS
     Route: 048
     Dates: start: 19960217, end: 19960218
  3. CEFAMEZINE [Suspect]
     Indication: PROPHYLAXIS
     Dosage: ROUTE DR
     Route: 042
     Dates: start: 19960219, end: 19960223
  4. LOPERAMIDE HYDROCHLORIDE [Concomitant]
     Indication: DIARRHOEA
     Route: 048
     Dates: start: 19960303
  5. SOLMEDROL [Concomitant]
     Indication: DRUG USE FOR UNKNOWN INDICATION
     Route: 042
     Dates: start: 19960305
  6. URINASTATIN [Concomitant]
     Indication: DRUG USE FOR UNKNOWN INDICATION
     Dosage: ROUTE DR
     Dates: start: 19960305
  7. VANCOMYCIN [Concomitant]
     Indication: DRUG USE FOR UNKNOWN INDICATION
     Route: 048
     Dates: start: 19960306
  8. KANAMYCIN [Concomitant]
     Indication: DRUG USE FOR UNKNOWN INDICATION
     Route: 048
     Dates: start: 19960306
  9. PENTOCILLIN [Concomitant]
     Indication: DRUG USE FOR UNKNOWN INDICATION
     Dosage: ROUTE DR
     Dates: start: 19960306
  10. VANCOMYCIN [Concomitant]
     Indication: COLON CANCER
     Dosage: ROUTE DR
     Dates: start: 19960307
  11. THIENAM [Concomitant]
     Indication: DRUG USE FOR UNKNOWN INDICATION
     Dosage: ROUTE DR
     Dates: start: 19960307
  12. KANAMYCIN [Concomitant]
     Indication: HYPERTENSION
     Route: 048
     Dates: start: 19960306

REACTIONS (7)
  - BLOOD ALBUMIN DECREASED [None]
  - CLOSTRIDIUM COLITIS [None]
  - DIARRHOEA [None]
  - GASTROINTESTINAL DISORDER [None]
  - MULTI-ORGAN FAILURE [None]
  - SEPSIS [None]
  - THROMBOCYTOPENIA [None]
